FAERS Safety Report 7941737-7 (Version None)
Quarter: 2011Q4

REPORT INFORMATION
  Report Type: 
  Country: None (occurrence: None)
  Receive Date: 20111128
  Receipt Date: 20110928
  Transmission Date: 20120403
  Serious: No
  Sender: FDA-Public Use
  Company Number: US-BAYER-2011-094385

PATIENT
  Age: 20 Year

DRUGS (3)
  1. REMICADE [Concomitant]
  2. ALEVE (CAPLET) [Suspect]
     Indication: ARTHRALGIA
  3. AZATHIOPRINE [Concomitant]

REACTIONS (1)
  - ARTHRALGIA [None]
